FAERS Safety Report 8167320-9 (Version None)
Quarter: 2012Q1

REPORT INFORMATION
  Report Type: 
  Country: None (occurrence: None)
  Receive Date: 20120227
  Receipt Date: 20120224
  Transmission Date: 20120608
  Serious: Yes (Other)
  Sender: FDA-Public Use
  Company Number: US-PFIZER INC-2012049794

PATIENT
  Sex: Female
  Weight: 77.098 kg

DRUGS (3)
  1. LIVALO [Concomitant]
     Indication: BLOOD CHOLESTEROL INCREASED
     Dosage: 2 MG ONCE DAILY
  2. IBUPROFEN (ADVIL) [Suspect]
     Indication: HEADACHE
     Dosage: ONCE DAILY
     Route: 048
     Dates: end: 20120213
  3. FENOFIBRATE [Concomitant]
     Indication: BLOOD CHOLESTEROL INCREASED
     Dosage: 200 MG ONCE DAILY

REACTIONS (4)
  - NAUSEA [None]
  - DIARRHOEA [None]
  - ENTEROCOLITIS INFECTIOUS [None]
  - VOMITING [None]
